FAERS Safety Report 6490288-8 (Version None)
Quarter: 2009Q4

REPORT INFORMATION
  Report Type: 
  Country: None (occurrence: None)
  Receive Date: 20091124
  Receipt Date: 20081222
  Transmission Date: 20100525
  Serious: Yes (Other)
  Sender: FDA-Public Use
  Company Number: 2008-188935-NL

PATIENT
  Age: 63 Year
  Sex: Male

DRUGS (2)
  1. TICE BCG [Suspect]
     Indication: BLADDER TRANSITIONAL CELL CARCINOMA
     Dosage: QW ; INVES
     Route: 043
     Dates: start: 20081021, end: 20081125
  2. LISINOPRIL [Concomitant]

REACTIONS (3)
  - CHILLS [None]
  - PYREXIA [None]
  - URINARY TRACT INFECTION [None]
